FAERS Safety Report 6206854-0 (Version None)
Quarter: 2009Q2

REPORT INFORMATION
  Report Type: 
  Country: None (occurrence: None)
  Receive Date: 20090528
  Receipt Date: 20090205
  Transmission Date: 20091009
  Serious: No
  Sender: FDA-Public Use
  Company Number: US-AMGEN-US332165

PATIENT
  Sex: Male

DRUGS (4)
  1. NPLATE [Suspect]
     Indication: IDIOPATHIC THROMBOCYTOPENIC PURPURA
     Route: 065
     Dates: start: 20081222
  2. DAPSONE [Concomitant]
     Route: 065
     Dates: end: 20090101
  3. LISINOPRIL [Concomitant]
     Route: 065
  4. LEXAPRO [Concomitant]
     Route: 065

REACTIONS (3)
  - HAEMATOMA [None]
  - PAIN [None]
  - RESPIRATORY TRACT INFECTION [None]
